FAERS Safety Report 6451208-5 (Version None)
Quarter: 2009Q4

REPORT INFORMATION
  Report Type: 
  Country: None (occurrence: None)
  Receive Date: 20091123
  Receipt Date: 20091118
  Transmission Date: 20100525
  Serious: Yes (Hospitalization)
  Sender: FDA-Public Use
  Company Number: US-PFIZER INC-2009299053

PATIENT
  Sex: Male
  Weight: 86.168 kg

DRUGS (25)
  1. BLINDED *IBUPROFEN [Suspect]
     Indication: OSTEOARTHRITIS
     Dosage: UNK
     Route: 048
     Dates: start: 20080318, end: 20090416
  2. BLINDED *NAPROXEN [Suspect]
     Indication: OSTEOARTHRITIS
     Dosage: UNK
     Route: 048
     Dates: start: 20080318, end: 20090416
  3. BLINDED *NO SUBJECT DRUG [Suspect]
     Indication: OSTEOARTHRITIS
     Dosage: UNK
     Route: 048
     Dates: start: 20080318, end: 20090416
  4. BLINDED *PLACEBO [Suspect]
     Indication: OSTEOARTHRITIS
     Dosage: UNK
     Route: 048
     Dates: start: 20080318, end: 20090416
  5. BLINDED CELECOXIB [Suspect]
     Indication: OSTEOARTHRITIS
     Dosage: UNK
     Route: 048
     Dates: start: 20080318, end: 20090416
  6. BLINDED IBUPROFEN [Suspect]
     Dosage: UNK
     Route: 048
     Dates: start: 20080318, end: 20090416
  7. BLINDED NAPROXEN [Suspect]
     Dosage: UNK
     Route: 048
     Dates: start: 20080318, end: 20090416
  8. BLINDED *IBUPROFEN [Suspect]
     Indication: RHEUMATOID ARTHRITIS
  9. BLINDED *NAPROXEN [Suspect]
     Indication: RHEUMATOID ARTHRITIS
  10. BLINDED *NO SUBJECT DRUG [Suspect]
     Indication: RHEUMATOID ARTHRITIS
  11. BLINDED *PLACEBO [Suspect]
     Indication: RHEUMATOID ARTHRITIS
  12. BLINDED CELECOXIB [Suspect]
     Indication: RHEUMATOID ARTHRITIS
  13. BLINDED IBUPROFEN [Suspect]
  14. BLINDED NAPROXEN [Suspect]
  15. ACETYLSALICYLIC ACID [Concomitant]
     Dosage: UNK
     Route: 048
     Dates: start: 20080317
  16. CENTRUM SILVER [Concomitant]
     Dosage: UNK
     Route: 048
     Dates: start: 20090401
  17. CYMBALTA [Concomitant]
     Dosage: UNK
     Route: 048
     Dates: start: 20000101
  18. CITALOPRAM [Concomitant]
     Dosage: UNK
     Route: 048
     Dates: start: 20080101
  19. HYDROXYCHLOROQUINE [Concomitant]
     Dosage: UNK
     Route: 048
     Dates: start: 20070101
  20. OXCARBAZEPINE [Concomitant]
     Dosage: UNK
     Route: 048
     Dates: start: 20060101
  21. VYTORIN [Concomitant]
     Dosage: UNK
     Route: 048
     Dates: start: 19970101
  22. PLAVIX [Concomitant]
     Dosage: UNK
     Route: 048
     Dates: start: 20080522
  23. GLIMEPIRIDE [Concomitant]
     Dosage: UNK
     Route: 048
     Dates: start: 20000101
  24. NITROGLYCERIN [Concomitant]
     Dosage: UNK
     Route: 048
     Dates: start: 19970101
  25. NEXIUM [Concomitant]
     Dosage: UNK
     Dates: end: 20090416

REACTIONS (3)
  - ATRIAL FIBRILLATION [None]
  - CORONARY ARTERY DISEASE [None]
  - THROMBOPHLEBITIS [None]
